FAERS Safety Report 8464106-2 (Version None)
Quarter: 2012Q2

REPORT INFORMATION
  Report Type: 
  Country: None (occurrence: None)
  Receive Date: 20120625
  Receipt Date: 20120618
  Transmission Date: 20120825
  Serious: Yes (Hospitalization)
  Sender: FDA-Public Use
  Company Number: BR-B.I. PHARMACEUTICALS,INC./RIDGEFIELD-2012-BR-00640BR

PATIENT
  Age: 65 Year
  Sex: Female

DRUGS (6)
  1. METOPROLOL SUCCINATE [Concomitant]
  2. MICARDIS [Concomitant]
  3. SYNTHROID [Concomitant]
  4. TRAYENTA [Suspect]
     Indication: TYPE 2 DIABETES MELLITUS
     Route: 048
  5. ATORVASTATIN CALCIUM [Concomitant]
  6. ASPIRIN [Concomitant]

REACTIONS (4)
  - PANCREATITIS [None]
  - NAUSEA [None]
  - ABDOMINAL PAIN [None]
  - VOMITING [None]
